FAERS Safety Report 14641588 (Version 4)
Quarter: 2022Q2

REPORT INFORMATION
  Report Type: Report from Study
  Country: US (occurrence: US)
  Receive Date: 20180315
  Receipt Date: 20220519
  Transmission Date: 20220720
  Serious: Yes (Death, Life-Threatening, Hospitalization, Other)
  Sender: FDA-Public Use
  Company Number: US-BRISTOL-MYERS SQUIBB COMPANY-BMS-2018-022912

PATIENT
  Age: 72 Year
  Sex: Male
  Weight: 98.5 kg

DRUGS (7)
  1. NIVOLUMAB [Suspect]
     Active Substance: NIVOLUMAB
     Indication: Extramammary Paget^s disease
     Dosage: 240 MG, UNK
     Route: 042
     Dates: start: 20180213
  2. NIVOLUMAB [Suspect]
     Active Substance: NIVOLUMAB
     Indication: Sarcoma
  3. IPILIMUMAB [Suspect]
     Active Substance: IPILIMUMAB
     Indication: Extramammary Paget^s disease
     Dosage: 97 MG, UNK
     Route: 042
     Dates: start: 20180213
  4. IPILIMUMAB [Suspect]
     Active Substance: IPILIMUMAB
     Indication: Sarcoma
  5. NIVOLUMAB [Suspect]
     Active Substance: NIVOLUMAB
     Indication: Sarcoma
  6. FUROSEMIDE [Concomitant]
     Active Substance: FUROSEMIDE
     Indication: Product used for unknown indication
     Route: 065
  7. GABAPENTIN [Concomitant]
     Active Substance: GABAPENTIN
     Indication: Product used for unknown indication
     Route: 065

REACTIONS (3)
  - Multiple organ dysfunction syndrome [Fatal]
  - Hyponatraemia [Recovering/Resolving]
  - Back pain [Recovering/Resolving]

NARRATIVE: CASE EVENT DATE: 20180226
